FAERS Safety Report 6099393-1 (Version None)
Quarter: 2009Q1

REPORT INFORMATION
  Report Type: 
  Country: None (occurrence: None)
  Receive Date: 20090226
  Receipt Date: 20090211
  Transmission Date: 20090719
  Serious: Yes (Hospitalization, Other)
  Sender: FDA-Public Use
  Company Number: 2009S1002469

PATIENT
  Age: 76 Year
  Sex: Female

DRUGS (1)
  1. LEVETIRACETAM [Suspect]
     Dosage: 1000 MG;TWICE A DAY;  ORAL
     Route: 048
     Dates: end: 20081101

REACTIONS (15)
  - ANOREXIA [None]
  - ANXIETY [None]
  - ARTHRALGIA [None]
  - BACK PAIN [None]
  - CONVULSION [None]
  - DEHYDRATION [None]
  - DIARRHOEA [None]
  - FALL [None]
  - HEAD INJURY [None]
  - PELVIC PAIN [None]
  - PNEUMONIA [None]
  - SOMNOLENCE [None]
  - SUBDURAL HAEMATOMA [None]
  - URINARY TRACT INFECTION [None]
  - WEIGHT DECREASED [None]
